FAERS Safety Report 8880755 (Version 1)
Quarter: 2012Q4

REPORT INFORMATION
  Report Type: Report from Study
  Country: SE (occurrence: SE)
  Receive Date: 20121101
  Receipt Date: 20121101
  Transmission Date: 20130627
  Serious: Yes (Hospitalization)
  Sender: FDA-Public Use
  Company Number: SE-GLAXOSMITHKLINE-B0839475A

PATIENT
  Age: 78 Year
  Sex: Male
  Weight: 105.1 kg

DRUGS (10)
  1. ELTROMBOPAG [Suspect]
     Indication: MYELODYSPLASTIC SYNDROME
     Dosage: 300MG Per day
     Route: 048
     Dates: start: 20120813, end: 20121015
  2. OMEPRAZOL [Concomitant]
     Indication: GASTRITIS PROPHYLAXIS
     Dates: start: 20120807
  3. BEHEPAN [Concomitant]
     Indication: ANAEMIA
     Dosage: 1MG Per day
     Dates: start: 20120807
  4. FOLACIN [Concomitant]
     Indication: ANAEMIA
     Dosage: 5MG Per day
     Dates: start: 20120807
  5. SELOKEN [Concomitant]
     Indication: HYPERTENSION
     Dosage: 25MG Per day
  6. EUSAPRIM FORTE [Concomitant]
     Indication: INFECTION PROPHYLAXIS
     Dates: start: 20120825
  7. CIPROFLOXACIN [Concomitant]
     Indication: INFECTION PROPHYLAXIS
     Dosage: 500MG Twice per day
     Dates: start: 20120917
  8. FLUCONAZOL [Concomitant]
     Indication: INFECTION PROPHYLAXIS
     Dosage: 200MG Twice per day
     Dates: start: 20120825
  9. ACYCLOVIR [Concomitant]
     Indication: INFECTION PROPHYLAXIS
     Dosage: 200MG Three times per day
     Dates: start: 20120825
  10. LAXOBERAL [Concomitant]
     Indication: CONSTIPATION
     Dates: start: 20121019

REACTIONS (4)
  - Transaminases increased [Recovered/Resolved with Sequelae]
  - General physical health deterioration [Recovered/Resolved with Sequelae]
  - Skin discolouration [Recovered/Resolved with Sequelae]
  - Deep vein thrombosis [Not Recovered/Not Resolved]
